FAERS Safety Report 6732635-5 (Version None)
Quarter: 2010Q2

REPORT INFORMATION
  Report Type: 
  Country: None (occurrence: None)
  Receive Date: 20100519
  Receipt Date: 20100512
  Transmission Date: 20101027
  Serious: Yes (Death, Other)
  Sender: FDA-Public Use
  Company Number: US-CELGENEUS-163-50794-10051501

PATIENT
  Age: 76 Year
  Sex: Female

DRUGS (2)
  1. VIDAZA [Suspect]
     Route: 065
  2. CLOFARABINE [Suspect]
     Route: 065

REACTIONS (3)
  - ACUTE MYELOID LEUKAEMIA [None]
  - DEATH [None]
  - MYELODYSPLASTIC SYNDROME TRANSFORMATION [None]
